FAERS Safety Report 4506729-9 (Version None)
Quarter: 2004Q4

REPORT INFORMATION
  Report Type: 
  Country: None (occurrence: None)
  Receive Date: 20041122
  Receipt Date: 20041117
  Transmission Date: 20050328
  Serious: Yes (Life-Threatening, Hospitalization, Disabling)
  Sender: FDA-Public Use
  Company Number: US-MERCK-0411USA02968

PATIENT
  Age: 51 Year
  Sex: Male

DRUGS (9)
  1. VIOXX [Suspect]
     Indication: HEADACHE
     Route: 048
     Dates: start: 20020101, end: 20040901
  2. LASIX [Concomitant]
     Route: 065
  3. PRAVACHOL [Concomitant]
     Route: 065
  4. AGGRENOX [Concomitant]
     Route: 065
  5. SOMA [Concomitant]
     Route: 065
  6. ZESTRIL [Concomitant]
     Route: 065
  7. DEMEROL [Concomitant]
     Route: 065
  8. FLOMAX [Concomitant]
     Route: 065
  9. NITROGLYCERIN [Concomitant]
     Route: 065

REACTIONS (2)
  - CEREBROVASCULAR ACCIDENT [None]
  - TRANSIENT ISCHAEMIC ATTACK [None]
